FAERS Safety Report 21015882 (Version 1)
Quarter: 2022Q2

REPORT INFORMATION
  Report Type: Spontaneous
  Country: US (occurrence: US)
  Receive Date: 20220628
  Receipt Date: 20220628
  Transmission Date: 20220720
  Serious: Yes (Other)
  Sender: FDA-Public Use
  Company Number: US-SA-SAC20220622000736

PATIENT

DRUGS (1)
  1. TAXOTERE [Suspect]
     Active Substance: DOCETAXEL
     Dosage: UNK
     Dates: start: 20130521, end: 20130723

REACTIONS (5)
  - Stenosis [Unknown]
  - Lacrimation increased [Unknown]
  - Dacryostenosis acquired [Unknown]
  - Lacrimal duct procedure [Unknown]
  - Procedural pain [Unknown]
